FAERS Safety Report 7570799-4 (Version None)
Quarter: 2011Q2

REPORT INFORMATION
  Report Type: 
  Country: None (occurrence: None)
  Receive Date: 20110624
  Receipt Date: 20110520
  Transmission Date: 20111010
  Serious: No
  Sender: FDA-Public Use
  Company Number: US-ALLERGAN-1106938US

PATIENT
  Sex: Female

DRUGS (2)
  1. LATISSE [Suspect]
     Indication: MADAROSIS
     Dosage: UNK
     Dates: start: 20110325, end: 20110519
  2. MASCARA [Concomitant]

REACTIONS (1)
  - VISION BLURRED [None]
